FAERS Safety Report 8368843-X (Version None)
Quarter: 2012Q2

REPORT INFORMATION
  Report Type: 
  Country: None (occurrence: None)
  Receive Date: 20120518
  Receipt Date: 20120507
  Transmission Date: 20120825
  Serious: Yes (Death)
  Sender: FDA-Public Use
  Company Number: FR-BRISTOL-MYERS SQUIBB COMPANY-16599730

PATIENT

DRUGS (5)
  1. GLUCOPHAGE [Suspect]
     Route: 064
     Dates: end: 20110209
  2. AMARYL [Suspect]
     Route: 064
     Dates: end: 20110209
  3. VICTOZA [Suspect]
     Route: 064
     Dates: start: 20100101, end: 20110209
  4. NOVORAPID [Suspect]
     Dosage: 1DF=8 TO 18IU AT EACH MEAL
     Route: 064
  5. INSULATARD NPH HUMAN [Suspect]
     Dosage: 40IU ALSO TAKEN 27NOV11-16AUG11 9FEB11-16AUG11 INJ
     Route: 064

REACTIONS (1)
  - FOETAL DEATH [None]
